FAERS Safety Report 8583327-1 (Version None)
Quarter: 2012Q3

REPORT INFORMATION
  Report Type: 
  Country: None (occurrence: None)
  Receive Date: 20120809
  Receipt Date: 20120806
  Transmission Date: 20120928
  Serious: Yes (Death)
  Sender: FDA-Public Use
  Company Number: AU-B.I. PHARMACEUTICALS,INC./RIDGEFIELD-2012-AU-01291AU

PATIENT
  Sex: Male
  Weight: 103 kg

DRUGS (8)
  1. LASIX [Concomitant]
     Dates: start: 20090101
  2. PRAZOSIN [Concomitant]
     Dates: start: 20090101
  3. PRADAXA [Suspect]
     Indication: ATRIAL FIBRILLATION
  4. PRADAXA [Suspect]
     Indication: CEREBROVASCULAR ACCIDENT PROPHYLAXIS
     Dates: start: 20110929
  5. PERINDOPRIL ERBUMINE [Concomitant]
     Dates: start: 20020101
  6. DILANTIN [Concomitant]
     Dates: start: 20090101
  7. SOTALOL HCL [Concomitant]
     Dates: start: 20090101
  8. CADUET [Concomitant]
     Dosage: 10/80
     Dates: start: 20090101

REACTIONS (1)
  - CEREBROVASCULAR ACCIDENT [None]
